FAERS Safety Report 7531322-3 (Version None)
Quarter: 2011Q2

REPORT INFORMATION
  Report Type: 
  Country: None (occurrence: None)
  Receive Date: 20110606
  Receipt Date: 20110606
  Transmission Date: 20111010
  Serious: No
  Sender: FDA-Public Use
  Company Number: None

PATIENT
  Sex: Male

DRUGS (1)
  1. ARICEPT [Suspect]
     Indication: DEMENTIA
     Dosage: 10 MG AM ORAL 5/7 - 5/9/11
     Route: 048

REACTIONS (4)
  - URINARY INCONTINENCE [None]
  - PRODUCT SUBSTITUTION ISSUE [None]
  - CONFUSIONAL STATE [None]
  - SOMNOLENCE [None]
